FAERS Safety Report 23928699 (Version 2)
Quarter: 2025Q3

REPORT INFORMATION
  Report Type: Spontaneous
  Country: US (occurrence: US)
  Receive Date: 20240531
  Receipt Date: 20250703
  Transmission Date: 20251020
  Serious: No
  Sender: RADIUS PHARM
  Company Number: US-RADIUS HEALTH INC.-2023US006486

PATIENT
  Age: 73 Year
  Sex: Female

DRUGS (1)
  1. TYMLOS [Suspect]
     Active Substance: ABALOPARATIDE
     Indication: Senile osteoporosis
     Route: 058
     Dates: start: 20231123

REACTIONS (19)
  - Injection site swelling [Unknown]
  - Tooth infection [Unknown]
  - Injection site pain [Unknown]
  - Injection site bruising [Unknown]
  - Hernia [Unknown]
  - Product use complaint [Unknown]
  - Palpitations [Not Recovered/Not Resolved]
  - Headache [Not Recovered/Not Resolved]
  - Intentional dose omission [Unknown]
  - Head discomfort [Unknown]
  - Injection site erythema [Unknown]
  - Product quality issue [Unknown]
  - Nausea [Unknown]
  - Tachycardia [Unknown]
  - Injection site haemorrhage [Unknown]
  - Dizziness [Not Recovered/Not Resolved]
  - Product administered at inappropriate site [Unknown]
  - Malaise [Unknown]
  - Wrong technique in product usage process [Unknown]

NARRATIVE: CASE EVENT DATE: 20231204
